FAERS Safety Report 4549203-6 (Version None)
Quarter: 2005Q1

REPORT INFORMATION
  Report Type: 
  Country: None (occurrence: None)
  Receive Date: 20050107
  Receipt Date: 20050107
  Transmission Date: 20050727
  Serious: Yes (Death)
  Sender: FDA-Public Use
  Company Number: None

PATIENT
  Age: 37 Year
  Sex: Male
  Weight: 90.7194 kg

DRUGS (3)
  1. DURAGESIC [Suspect]
     Indication: BACK PAIN
     Dosage: 75 MCG 72 HR RELEASE TRANSDERMAL
     Route: 062
     Dates: start: 20040803, end: 20040804
  2. LIPITOR [Concomitant]
  3. XANAX [Concomitant]

REACTIONS (1)
  - PHARMACEUTICAL PRODUCT COMPLAINT [None]
